FAERS Safety Report 6642597-7 (Version None)
Quarter: 2010Q1

REPORT INFORMATION
  Report Type: 
  Country: None (occurrence: None)
  Receive Date: 20100319
  Receipt Date: 20100311
  Transmission Date: 20100710
  Serious: No
  Sender: FDA-Public Use
  Company Number: JP-NOVOPROD-304937

PATIENT
  Age: 84 Year
  Sex: Male

DRUGS (2)
  1. LEVEMIR [Suspect]
     Indication: TYPE 2 DIABETES MELLITUS
     Dosage: 12 U, QD
     Route: 058
     Dates: end: 20100101
  2. NOVORAPID FLEXPEN [Concomitant]
     Indication: TYPE 2 DIABETES MELLITUS
     Dosage: 34 U, QD
     Route: 058

REACTIONS (2)
  - ANTI-INSULIN ANTIBODY [None]
  - BLOOD GLUCOSE ABNORMAL [None]
